FAERS Safety Report 9400226 (Version 2)
Quarter: 2013Q4

REPORT INFORMATION
  Report Type: Report from Study
  Country: GB (occurrence: GB)
  Receive Date: 20130715
  Receipt Date: 20131009
  Transmission Date: 20140711
  Serious: Yes (Death, Hospitalization, Disabling)
  Sender: FDA-Public Use
  Company Number: GB-ROCHE-1244588

PATIENT
  Age: 73 Year
  Sex: Female
  Weight: 61.4 kg

DRUGS (2)
  1. RITUXIMAB [Suspect]
     Indication: B-CELL LYMPHOMA
     Dosage: INDUCTION
     Route: 042
     Dates: start: 20091216, end: 20100719
  2. RITUXIMAB [Suspect]
     Dosage: MAINTENANCE
     Route: 042
     Dates: start: 20100916, end: 20120531

REACTIONS (1)
  - Progressive multifocal leukoencephalopathy [Fatal]
